FAERS Safety Report 13984127 (Version 3)
Quarter: 2017Q4

REPORT INFORMATION
  Report Type: Spontaneous
  Country: RU (occurrence: RU)
  Receive Date: 20170918
  Receipt Date: 20171010
  Transmission Date: 20180321
  Serious: Yes (Hospitalization, Other)
  Sender: FDA-Public Use
  Company Number: RU-BAYER-2017-168028

PATIENT
  Age: 36 Year
  Sex: Female
  Weight: 49 kg

DRUGS (6)
  1. MIRENA [Suspect]
     Active Substance: LEVONORGESTREL
     Indication: MENORRHAGIA
     Dosage: 20 MG/24HR, CONT
     Route: 015
     Dates: start: 20170802, end: 20170905
  2. MIRENA [Suspect]
     Active Substance: LEVONORGESTREL
     Indication: OVARIAN RUPTURE
  3. WOBENZYM (ALPHA-AMYLASE SWINE PANCREAS;BROMELAINS;CHYMOTRYPSIN;LIPASE;PANCREATIN;PAPAIN;RUTOSIDE;TRYPSIN) [Suspect]
     Active Substance: BROMELAINS\CHYMOTRYPSIN\LIPASE\PANCRELIPASE\PANCRELIPASE AMYLASE\PAPAIN\RUTIN\TRYPSIN
     Indication: ADVERSE EVENT
     Dosage: UNK
     Dates: start: 2017
  4. MIRENA [Suspect]
     Active Substance: LEVONORGESTREL
     Indication: ADENOMYOSIS
  5. YARINA [Suspect]
     Active Substance: DROSPIRENONE\ETHINYL ESTRADIOL
     Route: 048
  6. NUVARING [Concomitant]
     Active Substance: ETHINYL ESTRADIOL\ETONOGESTREL

REACTIONS (33)
  - Genital haemorrhage [Recovered/Resolved]
  - Dizziness [Recovered/Resolved]
  - Hot flush [Recovered/Resolved]
  - Abdominal discomfort [Recovered/Resolved]
  - Nausea [Recovered/Resolved]
  - Ovulation disorder [Recovered/Resolved]
  - Uterine pain [Recovered/Resolved]
  - Anaemia [Recovered/Resolved]
  - Feeling abnormal [Recovered/Resolved]
  - Tachycardia [Recovered/Resolved]
  - Depressed level of consciousness [Recovered/Resolved]
  - Feeling hot [Recovered/Resolved]
  - Muscular weakness [Recovered/Resolved]
  - Allergic reaction to excipient [Recovered/Resolved]
  - Asthenia [Recovered/Resolved]
  - Uterine enlargement [Recovered/Resolved]
  - Abdominal pain lower [Recovered/Resolved]
  - Vaginal haemorrhage [Recovered/Resolved]
  - Blood pressure increased [Recovered/Resolved]
  - Adnexa uteri pain [Recovered/Resolved]
  - Amenorrhoea [Recovered/Resolved]
  - Generalised oedema [Recovered/Resolved]
  - Diarrhoea [Recovered/Resolved]
  - Device allergy [Recovered/Resolved]
  - Abdominal distension [Recovered/Resolved]
  - Dyspnoea [Recovered/Resolved]
  - Rash [Recovered/Resolved]
  - Feeling cold [Recovered/Resolved]
  - Hyperhidrosis [Recovered/Resolved]
  - Limb discomfort [Recovered/Resolved]
  - Ovarian rupture [Recovered/Resolved]
  - Hypoaesthesia [Recovered/Resolved]
  - Face oedema [Recovered/Resolved]

NARRATIVE: CASE EVENT DATE: 2017
